FAERS Safety Report 8613345-6 (Version None)
Quarter: 2012Q3

REPORT INFORMATION
  Report Type: 
  Country: None (occurrence: None)
  Receive Date: 20120822
  Receipt Date: 20120806
  Transmission Date: 20120928
  Serious: Yes (Hospitalization, Other)
  Sender: FDA-Public Use
  Company Number: US-009507513-1203USA00306

PATIENT

DRUGS (6)
  1. FOSAMAX [Suspect]
     Indication: OSTEOPOROSIS
     Dosage: 70 MG, UNK
     Route: 048
     Dates: start: 20010801, end: 20080101
  2. VITAMIN E [Concomitant]
     Dosage: 400 IU, QD
     Dates: start: 20000101
  3. CALCIUM (UNSPECIFIED) (+) VITAMIN D (UNSPECIFIED) [Concomitant]
     Dosage: 1200-1000IU, QD
     Dates: start: 20000101
  4. CRESTOR [Concomitant]
  5. ALENDRONATE SODIUM [Suspect]
     Indication: OSTEOPOROSIS
     Dosage: 70 MG, UNK
     Dates: start: 20080101, end: 20100101
  6. PYRIDOXINE HCL [Concomitant]
     Dosage: 50 MG, QD
     Dates: start: 20000101

REACTIONS (4)
  - FEMUR FRACTURE [None]
  - MALIGNANT MELANOMA [None]
  - WRIST FRACTURE [None]
  - CARDIAC DISORDER [None]
